FAERS Safety Report 19115528 (Version 3)
Quarter: 2021Q3

REPORT INFORMATION
  Report Type: Spontaneous
  Country: US (occurrence: US)
  Receive Date: 20210409
  Receipt Date: 20210715
  Transmission Date: 20211014
  Serious: Yes (Death)
  Sender: FDA-Public Use
  Company Number: US-JNJFOC-20210414311

PATIENT
  Age: 77 Year
  Sex: Female
  Weight: 38 kg

DRUGS (2)
  1. DARZALEX FASPRO [Suspect]
     Active Substance: DARATUMUMAB\HYALURONIDASE-FIHJ
     Indication: PLASMA CELL MYELOMA
     Dosage: THE LAST DOSE OF DRUG ADMINISTERED ON 31?MAR?2021.
     Route: 058
     Dates: start: 20210324
  2. CARFILZOMIB [Suspect]
     Active Substance: CARFILZOMIB
     Indication: PLASMA CELL MYELOMA
     Dosage: THE LAST DOSE OF DRUG ADMINISTERED ON 31?MAR?2021.
     Route: 058
     Dates: start: 20210324

REACTIONS (1)
  - General physical health deterioration [Fatal]
